FAERS Safety Report 8929776 (Version 2)
Quarter: 2012Q4

REPORT INFORMATION
  Report Type: 
  Country: AU (occurrence: AU)
  Receive Date: 20121128
  Receipt Date: 20121211
  Transmission Date: 20130627
  Serious: Yes (Hospitalization, Other)
  Sender: FDA-Public Use
  Company Number: PHHY2012AU106540

PATIENT
  Sex: Female

DRUGS (1)
  1. GILENYA [Suspect]
     Dosage: UNK UKN, UNK
     Route: 048

REACTIONS (6)
  - Coronary artery stenosis [Recovered/Resolved]
  - Dyspepsia [Recovered/Resolved]
  - Myocardial infarction [Unknown]
  - Angina pectoris [Unknown]
  - Troponin increased [Unknown]
  - Vaginal haemorrhage [Unknown]
